FAERS Safety Report 7942180-7 (Version None)
Quarter: 2011Q4

REPORT INFORMATION
  Report Type: 
  Country: None (occurrence: None)
  Receive Date: 20111114
  Receipt Date: 20110103
  Transmission Date: 20120403
  Serious: Yes (Hospitalization)
  Sender: FDA-Public Use
  Company Number: 2011S1000003

PATIENT

DRUGS (1)
  1. CUBICIN [Suspect]
     Indication: ENDOCARDITIS
     Dosage: 480 MG;X1;IV
     Route: 042

REACTIONS (1)
  - HAEMOLYTIC ANAEMIA [None]
